FAERS Safety Report 15701710 (Version 1)
Quarter: 2018Q4

REPORT INFORMATION
  Report Type: Spontaneous
  Country: CA (occurrence: CA)
  Receive Date: 20181208
  Receipt Date: 20181208
  Transmission Date: 20190205
  Serious: Yes (Hospitalization, Other)
  Sender: FDA-Public Use
  Company Number: CA-TEVA-2018-CA-985869

PATIENT
  Age: 63 Year
  Sex: Female

DRUGS (2)
  1. OCTREOTIDE. [Suspect]
     Active Substance: OCTREOTIDE
     Indication: INSULINOMA
     Route: 065
  2. PROGLYCEM [Suspect]
     Active Substance: DIAZOXIDE
     Indication: PRODUCT USED FOR UNKNOWN INDICATION
     Route: 048

REACTIONS (8)
  - Hypoglycaemia [Unknown]
  - Obstruction gastric [Unknown]
  - Pancreatitis [Unknown]
  - Weight decreased [Unknown]
  - Weight increased [Unknown]
  - Metastases to liver [Unknown]
  - Cardiac failure congestive [Unknown]
  - Drug ineffective [Unknown]
